FAERS Safety Report 10558667 (Version 1)
Quarter: 2014Q4

REPORT INFORMATION
  Report Type: Spontaneous
  Country: US (occurrence: US)
  Receive Date: 20141031
  Receipt Date: 20141031
  Transmission Date: 20150529
  Serious: Yes (Other)
  Sender: FDA-Public Use
  Company Number: US-ASTRAZENECA-2014SE82158

PATIENT
  Age: 83 Year
  Sex: Male
  Weight: 79.4 kg

DRUGS (2)
  1. NEXIUM 24HR [Suspect]
     Active Substance: ESOMEPRAZOLE MAGNESIUM
     Indication: ABDOMINAL DISCOMFORT
     Route: 048
     Dates: start: 20141024, end: 20141024
  2. UNSPECIFIED [Concomitant]
     Active Substance: UNSPECIFIED INGREDIENT
     Indication: PROSTATOMEGALY

REACTIONS (8)
  - Nausea [Not Recovered/Not Resolved]
  - Mobility decreased [Unknown]
  - Vomiting [Unknown]
  - Eating disorder [Unknown]
  - Intentional product misuse [Recovered/Resolved]
  - Vertigo [Recovering/Resolving]
  - Feeling abnormal [Unknown]
  - Tremor [Unknown]

NARRATIVE: CASE EVENT DATE: 201410
